FAERS Safety Report 6607231-0 (Version None)
Quarter: 2010Q1

REPORT INFORMATION
  Report Type: 
  Country: None (occurrence: None)
  Receive Date: 20100227
  Receipt Date: 20100219
  Transmission Date: 20100710
  Serious: Yes (Hospitalization)
  Sender: FDA-Public Use
  Company Number: DE-JNJFOC-20100207818

PATIENT
  Age: 55 Year
  Sex: Male

DRUGS (5)
  1. HALDOL DECANOAT [Suspect]
     Indication: DRUG USE FOR UNKNOWN INDICATION
     Route: 030
     Dates: start: 19920101, end: 20100112
  2. LEVOMEPROMAZINE [Suspect]
     Indication: DRUG USE FOR UNKNOWN INDICATION
     Route: 048
     Dates: start: 20090401, end: 20100117
  3. ZYPREXA [Suspect]
     Indication: DRUG USE FOR UNKNOWN INDICATION
     Route: 048
     Dates: start: 20000101
  4. ZYPREXA [Suspect]
     Route: 048
     Dates: start: 20000101
  5. VALPROIC ACID [Concomitant]
     Route: 048
     Dates: start: 20071001

REACTIONS (1)
  - PARKINSON'S DISEASE [None]
